FAERS Safety Report 7707218 (Version 2)
Quarter: 2015Q3

REPORT INFORMATION
  Report Type: Spontaneous
  Country: US (occurrence: US)
  Receive Date: 20101214
  Receipt Date: 20150826
  Transmission Date: 20151125
  Serious: No
  Sender: FDA-Public Use
  Company Number: US-ASTRAZENECA-2009SE27418

PATIENT
  Sex: Female
  Weight: 93 kg

DRUGS (3)
  1. TRILAFON [Concomitant]
     Active Substance: PERPHENAZINE
     Dosage: UNKNOWN
     Route: 048
  2. QUETIAPINE FUMARATE. [Suspect]
     Active Substance: QUETIAPINE FUMARATE
     Indication: MENTAL DISORDER
     Route: 048
     Dates: start: 201506
  3. CRESTOR [Suspect]
     Active Substance: ROSUVASTATIN CALCIUM
     Indication: HYPERCHOLESTEROLAEMIA
     Route: 048
     Dates: start: 20091027

REACTIONS (8)
  - Alopecia [Unknown]
  - Mental impairment [Unknown]
  - Apathy [Unknown]
  - Vision blurred [Unknown]
  - Somnolence [Unknown]
  - Weight increased [Unknown]
  - Hyperphagia [Unknown]
  - Insomnia [Unknown]
